FAERS Safety Report 8185759-2 (Version None)
Quarter: 2012Q1

REPORT INFORMATION
  Report Type: 
  Country: None (occurrence: None)
  Receive Date: 20120305
  Receipt Date: 20120301
  Transmission Date: 20120608
  Serious: Yes (Other)
  Sender: FDA-Public Use
  Company Number: US-TEVA-309622USA

PATIENT
  Sex: Female

DRUGS (2)
  1. COPAXONE [Suspect]
     Indication: MULTIPLE SCLEROSIS
     Dosage: 20 MILLIGRAM;
     Route: 058
     Dates: start: 20110520, end: 20120201
  2. BUG BITE [Suspect]

REACTIONS (6)
  - HYPERSENSITIVITY [None]
  - INJECTION SITE REACTION [None]
  - LIMB INJURY [None]
  - MULTIPLE SCLEROSIS RELAPSE [None]
  - PRURITUS GENERALISED [None]
  - BURNING SENSATION [None]
